FAERS Safety Report 14291029 (Version 1)
Quarter: 2017Q4

REPORT INFORMATION
  Report Type: Spontaneous
  Country: GB (occurrence: GB)
  Receive Date: 20171215
  Receipt Date: 20171215
  Transmission Date: 20180321
  Serious: Yes (Congenital Anomaly, Other)
  Sender: FDA-Public Use
  Company Number: GB-ABBVIE-17P-167-2192815-00

PATIENT
  Sex: Male

DRUGS (1)
  1. EPILIM [Suspect]
     Active Substance: VALPROATE SODIUM
     Indication: MATERNAL EXPOSURE TIMING UNSPECIFIED
     Route: 064

REACTIONS (12)
  - Tracheal atresia [Unknown]
  - Language disorder [Unknown]
  - Dysphagia [Unknown]
  - Dyspepsia [Unknown]
  - Visual impairment [Unknown]
  - Sleep apnoea syndrome [Unknown]
  - Hypertonia [Unknown]
  - Cleft palate [Unknown]
  - Foetal exposure during pregnancy [Unknown]
  - Balance disorder [Unknown]
  - Speech disorder [Unknown]
  - Gait disturbance [Unknown]
